FAERS Safety Report 4717620-7 (Version None)
Quarter: 2005Q3

REPORT INFORMATION
  Report Type: 
  Country: None (occurrence: None)
  Receive Date: 20050712
  Receipt Date: 20050502
  Transmission Date: 20060218
  Serious: No
  Sender: FDA-Public Use
  Company Number: 2005S1000027

PATIENT
  Age: 88 Year
  Sex: Female
  Weight: 72.3 kg

DRUGS (17)
  1. CUBICIN [Suspect]
     Indication: STAPHYLOCOCCAL INFECTION
     Dosage: 300 MG; Q24H; IV
     Route: 042
     Dates: start: 20050131, end: 20050204
  2. PRINIVIL [Concomitant]
  3. ZESTRIL [Concomitant]
  4. COZAAR [Concomitant]
  5. LASIX [Concomitant]
  6. POTASSIUM CHLORIDE [Concomitant]
  7. SYNTHROID [Concomitant]
  8. COLCHICINE [Concomitant]
  9. PROTONIX [Concomitant]
  10. PREMARIN [Concomitant]
  11. LOVENOX [Concomitant]
  12. MULTI-VITAMIN [Concomitant]
  13. VANCOMYCIN [Concomitant]
  14. MAXIPIME [Concomitant]
  15. DIFLUCAN [Concomitant]
  16. ZYVOX [Concomitant]
  17. BACTRIM [Concomitant]

REACTIONS (1)
  - BLOOD CREATININE INCREASED [None]
